FAERS Safety Report 5640381-4 (Version None)
Quarter: 2008Q1

REPORT INFORMATION
  Report Type: 
  Country: None (occurrence: None)
  Receive Date: 20080227
  Receipt Date: 20080123
  Transmission Date: 20080703
  Serious: No
  Sender: FDA-Public Use
  Company Number: US-BAXTER-2008BH000316

PATIENT
  Sex: Male

DRUGS (2)
  1. HEPARIN SODIUM [Suspect]
     Indication: TRICUSPID VALVE REPAIR
     Dosage: DOSE UNIT:UNKNOWN
     Route: 065
  2. HEPARIN SODIUM [Suspect]
     Indication: ECHOCARDIOGRAM
     Dosage: DOSE UNIT:UNKNOWN
     Route: 065

REACTIONS (1)
  - HYPOTENSION [None]
